FAERS Safety Report 8324703-1 (Version None)
Quarter: 2012Q1

REPORT INFORMATION
  Report Type: 
  Country: None (occurrence: None)
  Receive Date: 20120315
  Receipt Date: 20110427
  Transmission Date: 20120608
  Serious: No
  Sender: FDA-Public Use
  Company Number: PHHY2011US11714

PATIENT
  Age: 53 Year
  Sex: Female

DRUGS (2)
  1. GILENYA [Suspect]
     Indication: MULTIPLE SCLEROSIS
     Dosage: 0.5 MG, QD, ORAL 0.5 MG, QD, ORAL
     Route: 048
     Dates: start: 20110125, end: 20110416
  2. GILENYA [Suspect]
     Indication: MULTIPLE SCLEROSIS
     Dosage: 0.5 MG, QD, ORAL 0.5 MG, QD, ORAL
     Route: 048
     Dates: start: 20110418

REACTIONS (6)
  - TOOTH DISORDER [None]
  - PAIN [None]
  - PRURITUS GENERALISED [None]
  - BURNING SENSATION [None]
  - BEDRIDDEN [None]
  - NEURALGIA [None]
